FAERS Safety Report 8116956-X (Version None)
Quarter: 2012Q1

REPORT INFORMATION
  Report Type: 
  Country: None (occurrence: None)
  Receive Date: 20120206
  Receipt Date: 20111011
  Transmission Date: 20120608
  Serious: No
  Sender: FDA-Public Use
  Company Number: US-COVIDIEN/TYCO HEALTHCARE/MALLINCKRODT-T201102530

PATIENT
  Sex: Male

DRUGS (6)
  1. FOSAMAX [Concomitant]
  2. FLUOXETINE [Suspect]
     Dosage: 40 MG, QD
  3. ANAFRANIL CAP [Suspect]
     Dosage: 25 MG, QD
  4. ANAFRANIL CAP [Suspect]
     Indication: OBSESSIVE-COMPULSIVE DISORDER
     Dosage: 25 MG, Q EVERY OTHER DAY
     Dates: start: 20110909
  5. SYNTHROID [Concomitant]
  6. FLUOXETINE [Suspect]
     Indication: OBSESSIVE-COMPULSIVE DISORDER
     Dosage: 40 MG, EVERY OTHER DAY
     Dates: start: 20110909

REACTIONS (3)
  - IRRITABILITY [None]
  - ABDOMINAL PAIN UPPER [None]
  - ANXIETY [None]
